FAERS Safety Report 11216795 (Version 1)
Quarter: 2015Q2

REPORT INFORMATION
  Report Type: Spontaneous
  Country: AT (occurrence: AT)
  Receive Date: 20150624
  Receipt Date: 20150624
  Transmission Date: 20150821
  Serious: Yes (Other)
  Sender: FDA-Public Use
  Company Number: AT-TEVA-571197ISR

PATIENT
  Age: 46 Year
  Sex: Female

DRUGS (14)
  1. MIRTAZAPINE. [Suspect]
     Active Substance: MIRTAZAPINE
     Dates: start: 20150427, end: 20150427
  2. EFECTIN ER [Concomitant]
     Active Substance: VENLAFAXINE HYDROCHLORIDE
     Dates: start: 20150512
  3. MIRTAZAPINE. [Suspect]
     Active Substance: MIRTAZAPINE
     Dates: start: 20150428, end: 20150504
  4. LAMICTAL [Concomitant]
     Active Substance: LAMOTRIGINE
     Dates: start: 20150414, end: 20150420
  5. LAMICTAL [Concomitant]
     Active Substance: LAMOTRIGINE
     Dates: start: 20150421, end: 20150505
  6. QUILONORM RETARD [Concomitant]
     Active Substance: LITHIUM CARBONATE
     Dates: start: 20150420, end: 20150422
  7. TOLVON [Concomitant]
     Active Substance: MIANSERIN
     Dates: start: 20150504
  8. SEROQUEL [Suspect]
     Active Substance: QUETIAPINE FUMARATE
     Dates: start: 20150528, end: 20150528
  9. QUILONORM RETARD [Concomitant]
     Active Substance: LITHIUM CARBONATE
     Dates: start: 20150411, end: 20150415
  10. QUILONORM RETARD [Concomitant]
     Active Substance: LITHIUM CARBONATE
     Dates: start: 20150416, end: 20150419
  11. SEROQUEL [Suspect]
     Active Substance: QUETIAPINE FUMARATE
     Dates: start: 20150508, end: 20150527
  12. SEROQUEL [Suspect]
     Active Substance: QUETIAPINE FUMARATE
     Dates: start: 20150411, end: 20150507
  13. LAMICTAL [Concomitant]
     Active Substance: LAMOTRIGINE
     Dates: start: 20150411, end: 20150413
  14. QUILONORM RETARD [Concomitant]
     Active Substance: LITHIUM CARBONATE
     Dates: start: 20150423

REACTIONS (2)
  - Restless legs syndrome [Recovered/Resolved]
  - Pain [Recovered/Resolved]

NARRATIVE: CASE EVENT DATE: 20150430
